FAERS Safety Report 8324508-1 (Version None)
Quarter: 2012Q2

REPORT INFORMATION
  Report Type: 
  Country: None (occurrence: None)
  Receive Date: 20120430
  Receipt Date: 20120430
  Transmission Date: 20120825
  Serious: Yes (Death, Hospitalization)
  Sender: FDA-Public Use
  Company Number: None

PATIENT
  Sex: Female
  Weight: 57.3 kg

DRUGS (2)
  1. DAUNORUBICIN HYDROCHLORIDE [Suspect]
     Dosage: 286.2 MG
     Dates: end: 20120316
  2. CYTARABINE [Suspect]
     Dosage: 1113 MG
     Dates: end: 20120330

REACTIONS (4)
  - PANCYTOPENIA [None]
  - DRUG RESISTANCE [None]
  - HAEMATURIA [None]
  - INCREASED TENDENCY TO BRUISE [None]
